FAERS Safety Report 6217407-2 (Version None)
Quarter: 2009Q2

REPORT INFORMATION
  Report Type: 
  Country: None (occurrence: None)
  Receive Date: 20090608
  Receipt Date: 20080916
  Transmission Date: 20091009
  Serious: No
  Sender: FDA-Public Use
  Company Number: A0747930A

PATIENT
  Age: 49 Year
  Sex: Female

DRUGS (4)
  1. WELLBUTRIN XL [Suspect]
     Indication: DEPRESSION
     Dosage: 300MG PER DAY
     Route: 048
     Dates: start: 20060101
  2. LEXAPRO [Concomitant]
  3. NEXIUM [Concomitant]
  4. CPAP MACHINE [Concomitant]

REACTIONS (3)
  - INSOMNIA [None]
  - SLEEP APNOEA SYNDROME [None]
  - SNORING [None]
